FAERS Safety Report 8061896-8 (Version None)
Quarter: 2012Q1

REPORT INFORMATION
  Report Type: 
  Country: None (occurrence: None)
  Receive Date: 20120117
  Receipt Date: 20120104
  Transmission Date: 20120608
  Serious: Yes (Hospitalization)
  Sender: FDA-Public Use
  Company Number: 2012P1000451

PATIENT
  Age: 54 Year
  Sex: Female
  Weight: 120.6568 kg

DRUGS (7)
  1. ASPIRIN [Concomitant]
  2. POTASSIUM [Concomitant]
  3. FENTANYL [Suspect]
     Indication: PAIN
     Dates: start: 20110606, end: 20111001
  4. FLEXERIL [Concomitant]
  5. FENTANYL [Suspect]
     Indication: BREAKTHROUGH PAIN
     Dosage: 1 PATCH;Q73H;TDER
     Route: 062
     Dates: start: 20111001
  6. TEGRATOL XR [Concomitant]
  7. EXTRA STRENGTH VICODIN [Concomitant]

REACTIONS (3)
  - CALCINOSIS [None]
  - MALAISE [None]
  - PNEUMONIA [None]
